FAERS Safety Report 7495259-0 (Version None)
Quarter: 2011Q2

REPORT INFORMATION
  Report Type: 
  Country: None (occurrence: None)
  Receive Date: 20110522
  Receipt Date: 20110509
  Transmission Date: 20111010
  Serious: Yes (Other)
  Sender: FDA-Public Use
  Company Number: GB-MYLANLABS-2011S1009622

PATIENT
  Sex: Female
  Weight: 82 kg

DRUGS (5)
  1. TOPIRAMATE [Suspect]
     Indication: PRODUCT USED FOR UNKNOWN INDICATION
     Route: 048
     Dates: start: 20110308, end: 20110414
  2. MAXALT [Concomitant]
     Indication: MIGRAINE
     Route: 060
     Dates: start: 20070101
  3. SUMATRIPTAN SUCCINATE [Concomitant]
     Indication: MIGRAINE
     Route: 058
  4. DOMPERIDONE [Concomitant]
     Indication: NAUSEA
     Route: 048
  5. SUMATRIPTAN SUCCINATE [Concomitant]
     Indication: MIGRAINE
     Route: 048

REACTIONS (3)
  - AMNESIA [None]
  - PARAESTHESIA [None]
  - CONFUSIONAL STATE [None]
